FAERS Safety Report 5012209-7 (Version None)
Quarter: 2006Q2

REPORT INFORMATION
  Report Type: 
  Country: None (occurrence: None)
  Receive Date: 20060410
  Receipt Date: 20060110
  Transmission Date: 20061013
  Serious: No
  Sender: FDA-Public Use
  Company Number: 06P-163-0322287-00

PATIENT
  Age: 17 Year
  Sex: Female
  Weight: 81.6475 kg

DRUGS (17)
  1. DEPAKOTE [Suspect]
     Indication: CONVULSION
     Dosage: SEE IMAGE
     Route: 048
  2. CLOZAPINE [Suspect]
     Indication: AGGRESSION
     Dosage: 25 MG QAM, 100 MG QHS, PER ORAL
     Route: 048
     Dates: end: 20051001
  3. CLOZAPINE [Suspect]
     Indication: DELUSIONAL DISORDER, PERSECUTORY TYPE
     Dosage: 25 MG QAM, 100 MG QHS, PER ORAL
     Route: 048
     Dates: end: 20051001
  4. CLOZAPINE [Suspect]
     Indication: HALLUCINATION
     Dosage: 25 MG QAM, 100 MG QHS, PER ORAL
     Route: 048
     Dates: end: 20051001
  5. CLOZAPINE [Suspect]
     Indication: INTENTIONAL SELF-INJURY
     Dosage: 25 MG QAM, 100 MG QHS, PER ORAL
     Route: 048
     Dates: end: 20051001
  6. CLOZAPINE [Suspect]
     Indication: MILD MENTAL RETARDATION
     Dosage: 25 MG QAM, 100 MG QHS, PER ORAL
     Route: 048
     Dates: end: 20051001
  7. CLOZAPINE [Suspect]
     Indication: PSYCHOTIC DISORDER
     Dosage: 25 MG QAM, 100 MG QHS, PER ORAL
     Route: 048
     Dates: end: 20051001
  8. CLOZAPINE [Suspect]
     Indication: SCHIZOAFFECTIVE DISORDER
     Dosage: 25 MG QAM, 100 MG QHS, PER ORAL
     Route: 048
     Dates: end: 20051001
  9. CLOZAPINE [Suspect]
     Indication: AGGRESSION
     Dosage: 25 MG QAM, 100 MG QHS, PER ORAL
     Route: 048
     Dates: start: 20050715
  10. CLOZAPINE [Suspect]
     Indication: DELUSIONAL DISORDER, PERSECUTORY TYPE
     Dosage: 25 MG QAM, 100 MG QHS, PER ORAL
     Route: 048
     Dates: start: 20050715
  11. CLOZAPINE [Suspect]
     Indication: HALLUCINATION
     Dosage: 25 MG QAM, 100 MG QHS, PER ORAL
     Route: 048
     Dates: start: 20050715
  12. CLOZAPINE [Suspect]
     Indication: INTENTIONAL SELF-INJURY
     Dosage: 25 MG QAM, 100 MG QHS, PER ORAL
     Route: 048
     Dates: start: 20050715
  13. CLOZAPINE [Suspect]
     Indication: MILD MENTAL RETARDATION
     Dosage: 25 MG QAM, 100 MG QHS, PER ORAL
     Route: 048
     Dates: start: 20050715
  14. CLOZAPINE [Suspect]
     Indication: PSYCHOTIC DISORDER
     Dosage: 25 MG QAM, 100 MG QHS, PER ORAL
     Route: 048
     Dates: start: 20050715
  15. CLOZAPINE [Suspect]
     Indication: SCHIZOAFFECTIVE DISORDER
     Dosage: 25 MG QAM, 100 MG QHS, PER ORAL
     Route: 048
     Dates: start: 20050715
  16. RISPERIDONE [Concomitant]
  17. LITHIUM CARBONATE [Concomitant]

REACTIONS (1)
  - GRANULOCYTOPENIA [None]
